FAERS Safety Report 10190688 (Version 3)
Quarter: 2014Q3

REPORT INFORMATION
  Report Type: Spontaneous
  Country: DE (occurrence: DE)
  Receive Date: 20140523
  Receipt Date: 20140707
  Transmission Date: 20150326
  Serious: Yes (Other)
  Sender: FDA-Public Use
  Company Number: DE-BIOGENIDEC-2014BI048172

PATIENT
  Age: 39 Year
  Sex: Female
  Weight: 65 kg

DRUGS (2)
  1. AVONEX [Suspect]
     Active Substance: INTERFERON BETA-1A
     Indication: MULTIPLE SCLEROSIS
     Route: 030
     Dates: start: 20120726, end: 20140514
  2. VITAMIN D [Concomitant]
     Active Substance: CHOLECALCIFEROL
     Indication: RELAPSING-REMITTING MULTIPLE SCLEROSIS
     Dates: start: 201312

REACTIONS (1)
  - Eosinopenia [Recovered/Resolved]

NARRATIVE: CASE EVENT DATE: 20140402
